FAERS Safety Report 5797324-2 (Version None)
Quarter: 2008Q3

REPORT INFORMATION
  Report Type: 
  Country: None (occurrence: None)
  Receive Date: 20080701
  Receipt Date: 20080625
  Transmission Date: 20090109
  Serious: Yes (Other)
  Sender: FDA-Public Use
  Company Number: US-PFIZER INC-2008053670

PATIENT
  Sex: Female
  Weight: 80 kg

DRUGS (4)
  1. PROVERA [Suspect]
     Indication: CERVIX CARCINOMA
  2. CELEBREX [Suspect]
     Indication: RHEUMATOID ARTHRITIS
  3. LIPITOR [Suspect]
     Indication: MYOCARDIAL INFARCTION
  4. ZOLOFT [Concomitant]
     Indication: EMOTIONAL DISTRESS

REACTIONS (1)
  - CEREBROVASCULAR ACCIDENT [None]
